FAERS Safety Report 7156964-9 (Version None)
Quarter: 2010Q4

REPORT INFORMATION
  Report Type: 
  Country: None (occurrence: None)
  Receive Date: 20101214
  Receipt Date: 20100119
  Transmission Date: 20110411
  Serious: No
  Sender: FDA-Public Use
  Company Number: US-ASTRAZENECA-2010SE02379

PATIENT
  Age: 81 Year
  Sex: Female

DRUGS (4)
  1. CRESTOR [Suspect]
     Indication: BLOOD CHOLESTEROL INCREASED
     Route: 048
     Dates: start: 20080101
  2. LISINOPRIL [Concomitant]
  3. ZOLOFT [Concomitant]
  4. FOSAMAX [Concomitant]

REACTIONS (2)
  - MUSCLE SPASMS [None]
  - POLLAKIURIA [None]
